FAERS Safety Report 6339140-9 (Version None)
Quarter: 2009Q3

REPORT INFORMATION
  Report Type: 
  Country: None (occurrence: None)
  Receive Date: 20090903
  Receipt Date: 20090824
  Transmission Date: 20100115
  Serious: Yes (Other)
  Sender: FDA-Public Use
  Company Number: US-WYE-H10702609

PATIENT
  Sex: Female
  Weight: 56.75 kg

DRUGS (2)
  1. EFFEXOR XR [Suspect]
     Indication: DEPRESSION
     Route: 048
     Dates: start: 20060101, end: 20090701
  2. EFFEXOR XR [Suspect]
     Route: 048
     Dates: start: 20090701

REACTIONS (5)
  - BALANCE DISORDER [None]
  - DEAFNESS UNILATERAL [None]
  - NERVE INJURY [None]
  - TINNITUS [None]
  - VERTIGO [None]
